FAERS Safety Report 6749144-X (Version None)
Quarter: 2010Q2

REPORT INFORMATION
  Report Type: 
  Country: None (occurrence: None)
  Receive Date: 20100601
  Receipt Date: 20100521
  Transmission Date: 20101027
  Serious: Yes (Other)
  Sender: FDA-Public Use
  Company Number: US-BAYER-201015832BCC

PATIENT
  Age: 75 Year
  Sex: Female
  Weight: 48 kg

DRUGS (1)
  1. ASPIRIN [Suspect]
     Indication: HEADACHE
     Route: 065
     Dates: start: 19900101

REACTIONS (3)
  - BLOOD DISORDER [None]
  - GASTROINTESTINAL ULCER [None]
  - SKIN ATROPHY [None]
